FAERS Safety Report 5807614-2 (Version None)
Quarter: 2008Q3

REPORT INFORMATION
  Report Type: 
  Country: None (occurrence: None)
  Receive Date: 20080711
  Receipt Date: 20080702
  Transmission Date: 20090109
  Serious: Yes (Other)
  Sender: FDA-Public Use
  Company Number: JP-SANOFI-SYNTHELABO-A01200807803

PATIENT
  Age: 79 Year
  Sex: Male

DRUGS (5)
  1. URSO 250 [Concomitant]
     Indication: DRUG USE FOR UNKNOWN INDICATION
     Dosage: 600 MG
     Route: 048
  2. AMLODIPINE [Concomitant]
     Indication: DRUG USE FOR UNKNOWN INDICATION
     Dosage: 5 MG
     Route: 048
  3. PERDIPIN LA [Concomitant]
     Indication: DRUG USE FOR UNKNOWN INDICATION
     Dosage: 80 MG
     Route: 048
  4. FAMOTIDINE [Concomitant]
     Indication: DRUG USE FOR UNKNOWN INDICATION
     Dosage: 40 MG
     Route: 048
  5. MYSLEE [Suspect]
     Indication: INSOMNIA
     Dosage: 5 MG
     Route: 048
     Dates: start: 20080531, end: 20080101

REACTIONS (1)
  - DELIRIUM [None]
